FAERS Safety Report 8824123 (Version 1)
Quarter: 2012Q4

REPORT INFORMATION
  Report Type: 
  Country: GB (occurrence: GB)
  Receive Date: 20121004
  Receipt Date: 20121004
  Transmission Date: 20130627
  Serious: Yes (Hospitalization)
  Sender: FDA-Public Use
  Company Number: GB-RANBAXY-2012R1-60533

PATIENT
  Age: 58 Year
  Sex: Male
  Weight: 76.6 kg

DRUGS (8)
  1. SERTRALINE [Suspect]
     Indication: DEPRESSION
     Dosage: 150 mg, qd
     Route: 048
     Dates: start: 20120821
  2. SERTRALINE [Suspect]
     Dosage: UNK
     Route: 048
     Dates: start: 20120830, end: 20120903
  3. SERTRALINE [Suspect]
     Dosage: 100 mg, qd
     Route: 048
  4. LORAZEPAM [Concomitant]
     Indication: PRODUCT USED FOR UNKNOWN INDICATION
     Dosage: 1 mg, qid
     Route: 048
     Dates: start: 20120828
  5. PARACETAMOL [Concomitant]
     Indication: PRODUCT USED FOR UNKNOWN INDICATION
     Dosage: 1 g, qid
     Route: 048
     Dates: start: 20120820
  6. PROMETHAZINE [Concomitant]
     Indication: PRODUCT USED FOR UNKNOWN INDICATION
     Dosage: 25 mg, bid
     Route: 048
     Dates: start: 20120828
  7. TRAZODONE [Concomitant]
     Indication: PRODUCT USED FOR UNKNOWN INDICATION
     Dosage: 50 mg, qd
     Route: 048
     Dates: start: 20120725, end: 20120806
  8. ZOPICLONE [Concomitant]
     Indication: PRODUCT USED FOR UNKNOWN INDICATION
     Dosage: 7.5 mg, qd
     Route: 048
     Dates: start: 20120829, end: 20120903

REACTIONS (6)
  - Anxiety [Recovering/Resolving]
  - Condition aggravated [Recovering/Resolving]
  - Agitation [Recovering/Resolving]
  - Sleep disorder [Recovering/Resolving]
  - Suicidal ideation [Recovering/Resolving]
  - Self-injurious ideation [Recovering/Resolving]
